FAERS Safety Report 10014728 (Version 1)
Quarter: 2014Q1

REPORT INFORMATION
  Report Type: Spontaneous
  Country: PH (occurrence: PH)
  Receive Date: 20140317
  Receipt Date: 20140317
  Transmission Date: 20141002
  Serious: Yes (Hospitalization, Other)
  Sender: FDA-Public Use
  Company Number: PH-009507513-1403PHL007000

PATIENT
  Sex: Female

DRUGS (3)
  1. HYZAAR [Suspect]
     Indication: HYPERTENSION
     Dosage: 1 TABLET, ONCE A DAY
     Route: 048
     Dates: end: 20140228
  2. AMLODIPINE [Concomitant]
     Dosage: UNK
  3. ROSUVASTATIN CALCIUM [Concomitant]

REACTIONS (4)
  - Dehydration [Unknown]
  - Blood potassium decreased [Unknown]
  - Haemoglobin decreased [Unknown]
  - Pollakiuria [Unknown]
